FAERS Safety Report 6079922-4 (Version None)
Quarter: 2009Q1

REPORT INFORMATION
  Report Type: 
  Country: None (occurrence: None)
  Receive Date: 20090217
  Receipt Date: 20090213
  Transmission Date: 20090719
  Serious: Yes (Hospitalization)
  Sender: FDA-Public Use
  Company Number: FR-AVENTIS-200910268FR

PATIENT
  Age: 74 Year
  Sex: Female

DRUGS (8)
  1. LOVENOX [Suspect]
     Indication: PHLEBITIS
     Route: 048
     Dates: start: 20081003, end: 20081010
  2. LOVENOX [Suspect]
     Route: 048
     Dates: start: 20081003, end: 20081017
  3. METFORMIN HCL [Suspect]
     Route: 048
     Dates: start: 20050101, end: 20081030
  4. LERCAN [Suspect]
     Route: 048
     Dates: start: 20081001
  5. KARDEGIC                           /00002703/ [Suspect]
     Route: 048
     Dates: start: 19980101, end: 20081015
  6. COTAREG [Suspect]
     Route: 048
     Dates: start: 20070101
  7. SURBRONC [Suspect]
     Route: 048
     Dates: end: 20081102
  8. COUMADIN [Concomitant]

REACTIONS (1)
  - ANAEMIA HAEMOLYTIC AUTOIMMUNE [None]
